FAERS Safety Report 7237587-X (Version None)
Quarter: 2011Q1

REPORT INFORMATION
  Report Type: 
  Country: None (occurrence: None)
  Receive Date: 20110121
  Receipt Date: 20110111
  Transmission Date: 20110831
  Serious: Yes (Hospitalization)
  Sender: FDA-Public Use
  Company Number: CH-JNJFOC-20110103266

PATIENT

DRUGS (2)
  1. PARACETAMOL [Suspect]
     Indication: PRODUCT USED FOR UNKNOWN INDICATION
     Route: 048
  2. PARACETAMOL [Suspect]
     Route: 048

REACTIONS (3)
  - GASTROINTESTINAL DISORDER [None]
  - ACCIDENTAL OVERDOSE [None]
  - ACCIDENTAL DRUG INTAKE BY CHILD [None]
